FAERS Safety Report 9099605 (Version 1)
Quarter: 2013Q1

REPORT INFORMATION
  Report Type: Spontaneous
  Country: US (occurrence: US)
  Receive Date: 20130214
  Receipt Date: 20130214
  Transmission Date: 20140127
  Serious: Yes (Other)
  Sender: FDA-Public Use
  Company Number: PHEH2013US003395

PATIENT
  Sex: Female

DRUGS (5)
  1. VIVELLE DOT [Suspect]
     Indication: HORMONE REPLACEMENT THERAPY
     Dosage: 0.375 MG
     Route: 062
     Dates: start: 201101, end: 20130130
  2. VIVELLE DOT [Suspect]
     Dosage: 0.1 MG ONCE PER WEEK
     Route: 062
     Dates: start: 20130130, end: 20130130
  3. ESTROGEN [Suspect]
     Dosage: UNK UKN, UNK
     Route: 062
  4. ESTROGEN [Suspect]
     Dosage: UNK UKN, UNK
     Route: 067
  5. ESTROGEN [Suspect]
     Dosage: UNK UKN, UNK
     Route: 061

REACTIONS (4)
  - Immune system disorder [Unknown]
  - Foreign body reaction [Unknown]
  - Device malfunction [Unknown]
  - Drug ineffective [Unknown]
